FAERS Safety Report 8665570 (Version 2)
Quarter: 2013Q4

REPORT INFORMATION
  Report Type: Spontaneous
  Country: US (occurrence: US)
  Receive Date: 20120716
  Receipt Date: 20131101
  Transmission Date: 20140711
  Serious: No
  Sender: FDA-Public Use
  Company Number: US-009507513-1207USA001911

PATIENT
  Sex: 0

DRUGS (1)
  1. PROVENTIL [Suspect]

REACTIONS (2)
  - Incorrect product storage [Unknown]
  - Medication error [Unknown]
